FAERS Safety Report 4751203-8 (Version None)
Quarter: 2005Q3

REPORT INFORMATION
  Report Type: 
  Country: None (occurrence: None)
  Receive Date: 20050823
  Receipt Date: 20050823
  Transmission Date: 20060218
  Serious: Yes (Life-Threatening, Disabling)
  Sender: FDA-Public Use
  Company Number: None

PATIENT
  Age: 47 Year
  Sex: Male
  Weight: 99.7913 kg

DRUGS (1)
  1. INTERFERON [Suspect]
     Indication: HEPATITIS C

REACTIONS (7)
  - ARTHRALGIA [None]
  - ASTHENIA [None]
  - BONE PAIN [None]
  - FATIGUE [None]
  - INSOMNIA [None]
  - MYALGIA [None]
  - UNEVALUABLE EVENT [None]
